FAERS Safety Report 4457501-X (Version None)
Quarter: 2004Q3

REPORT INFORMATION
  Report Type: 
  Country: None (occurrence: None)
  Receive Date: 20040831
  Receipt Date: 20040716
  Transmission Date: 20050211
  Serious: Yes (Hospitalization)
  Sender: FDA-Public Use
  Company Number: US-JNJFOC-20040705060

PATIENT
  Age: 35 Year
  Sex: Female

DRUGS (10)
  1. RISPERDAL [Suspect]
     Indication: BIPOLAR DISORDER
     Dosage: 25 MG, 1 IN 2 WEEK, INTRA-MUSCULAR
     Route: 030
     Dates: start: 20040712
  2. RISPERIDONE [Suspect]
     Indication: BIPOLAR DISORDER
     Dosage: ORAL
     Route: 048
  3. OXCARBAMAZEPINE (OXCARBAZEPINE) [Concomitant]
  4. RITALIN [Concomitant]
  5. TRILEPTAL [Concomitant]
  6. ALBUTEROL [Concomitant]
  7. LISINOPRIL [Concomitant]
  8. DARVOCET [Concomitant]
  9. LEXAPRO [Concomitant]
  10. LITHIUM CARBONATE [Concomitant]

REACTIONS (3)
  - ELECTROCARDIOGRAM QT CORRECTED INTERVAL PROLONGED [None]
  - HEART RATE DECREASED [None]
  - OVERDOSE [None]
